FAERS Safety Report 25245452 (Version 1)
Quarter: 2025Q2

REPORT INFORMATION
  Report Type: Spontaneous
  Country: US (occurrence: None)
  Receive Date: 20250426
  Receipt Date: 20250426
  Transmission Date: 20250717
  Serious: Yes (Other)
  Sender: FDA-CTU
  Company Number: None

PATIENT
  Age: 55 Year
  Sex: Female
  Weight: 47.25 kg

DRUGS (12)
  1. COLCHICINE [Suspect]
     Active Substance: COLCHICINE
     Indication: Pericarditis
     Dosage: OTHER QUANTITY : 1 TABLET(S);?FREQUENCY : TWICE A DAY;?
     Route: 048
     Dates: start: 20241211, end: 20250305
  2. COD LIVER OIL [Concomitant]
     Active Substance: COD LIVER OIL
  3. VITAMIN C [Concomitant]
     Active Substance: ASCORBIC ACID
  4. COENZYME Q10 [Concomitant]
     Active Substance: DIETARY SUPPLEMENT\UBIDECARENONE
  5. NAC [Concomitant]
  6. OREGANO LEAF OIL [Concomitant]
     Active Substance: OREGANO LEAF OIL
  7. DIETARY SUPPLEMENT\HERBALS\MILK THISTLE [Concomitant]
     Active Substance: MILK THISTLE
  8. organs [Concomitant]
  9. HERBALS\SPIRULINA [Concomitant]
     Active Substance: HERBALS\SPIRULINA
  10. DIETARY SUPPLEMENT [Concomitant]
     Active Substance: DIETARY SUPPLEMENT
  11. GINGER [Concomitant]
     Active Substance: GINGER
  12. HERBALS\TURMERIC [Concomitant]
     Active Substance: HERBALS\TURMERIC

REACTIONS (3)
  - Arthralgia [None]
  - Tendon pain [None]
  - Iliotibial band syndrome [None]

NARRATIVE: CASE EVENT DATE: 20250326
